FAERS Safety Report 9373409 (Version 1)
Quarter: 2013Q2

REPORT INFORMATION
  Report Type: Report from Study
  Country: DE (occurrence: DE)
  Receive Date: 20130627
  Receipt Date: 20130627
  Transmission Date: 20140414
  Serious: Yes (Hospitalization, Other)
  Sender: FDA-Public Use
  Company Number: DE-ABBOTT-13P-062-1099639-00

PATIENT
  Age: 42 Year
  Sex: Male
  Weight: 76 kg

DRUGS (2)
  1. HUMIRA [Suspect]
     Indication: PSORIASIS
     Route: 058
     Dates: end: 20130201
  2. STEROIDS [Suspect]
     Indication: ASTHMA

REACTIONS (2)
  - Polyneuropathy [Unknown]
  - Pneumonia [Recovered/Resolved]
